FAERS Safety Report 19190236 (Version 1)
Quarter: 2021Q2

REPORT INFORMATION
  Report Type: Spontaneous
  Country: AU (occurrence: AU)
  Receive Date: 20210428
  Receipt Date: 20210428
  Transmission Date: 20210717
  Serious: Yes (Hospitalization)
  Sender: FDA-Public Use
  Company Number: AU-INDIVIOR EUROPE LIMITED-INDV-129375-2021

PATIENT
  Age: 52 Year
  Sex: Female

DRUGS (4)
  1. PALEXIA [Concomitant]
     Active Substance: TAPENTADOL HYDROCHLORIDE
     Indication: PRODUCT USED FOR UNKNOWN INDICATION
     Dosage: UNK
     Route: 065
  2. TEMGESIC [Suspect]
     Active Substance: BUPRENORPHINE HYDROCHLORIDE
     Indication: PRODUCT USED FOR UNKNOWN INDICATION
     Dosage: UNK
     Route: 065
  3. PALEXIA [Concomitant]
     Active Substance: TAPENTADOL HYDROCHLORIDE
     Indication: PRODUCT USED FOR UNKNOWN INDICATION
     Dosage: UNK
     Route: 065
  4. PREGABALIN. [Concomitant]
     Active Substance: PREGABALIN
     Indication: PRODUCT USED FOR UNKNOWN INDICATION
     Dosage: 75 MILLIGRAM PER DAY
     Route: 065

REACTIONS (18)
  - Respiratory rate increased [Unknown]
  - Fat intolerance [Unknown]
  - Post-traumatic stress disorder [Unknown]
  - Abdominal pain [Unknown]
  - Poor quality sleep [Unknown]
  - Abdominal discomfort [Unknown]
  - Tremor [Unknown]
  - Gallbladder disorder [Recovered/Resolved]
  - Syncope [Unknown]
  - Anxiety [Unknown]
  - Irritability [Unknown]
  - Emotional distress [Unknown]
  - Lactose intolerance [Unknown]
  - Asthma [Unknown]
  - Dyspnoea [Unknown]
  - Depression [Unknown]
  - Tension headache [Unknown]
  - Gastrooesophageal reflux disease [Unknown]
